FAERS Safety Report 7731330-3 (Version None)
Quarter: 2011Q3

REPORT INFORMATION
  Report Type: 
  Country: None (occurrence: None)
  Receive Date: 20110906
  Receipt Date: 20110830
  Transmission Date: 20111222
  Serious: Yes (Hospitalization)
  Sender: FDA-Public Use
  Company Number: US-AMGEN-KDC411478

PATIENT
  Sex: Female
  Weight: 74 kg

DRUGS (3)
  1. GEMZAR [Concomitant]
  2. FLUOROURACIL [Concomitant]
     Indication: ADENOCARCINOMA PANCREAS
     Dosage: 4752 MG, UNK
     Dates: start: 20100315
  3. PANITUMUMAB [Suspect]
     Indication: ADENOCARCINOMA PANCREAS
     Dosage: 474 MG, UNK
     Dates: start: 20100315

REACTIONS (12)
  - PERIPHERAL MOTOR NEUROPATHY [None]
  - HYPOGLYCAEMIA [None]
  - DEHYDRATION [None]
  - HYPOKALAEMIA [None]
  - NAUSEA [None]
  - HYPOCALCAEMIA [None]
  - WEIGHT DECREASED [None]
  - DECREASED APPETITE [None]
  - FATIGUE [None]
  - HYPOMAGNESAEMIA [None]
  - VOMITING [None]
  - ABDOMINAL PAIN [None]
